FAERS Safety Report 8547097-5 (Version None)
Quarter: 2012Q3

REPORT INFORMATION
  Report Type: 
  Country: None (occurrence: None)
  Receive Date: 20120727
  Receipt Date: 20120411
  Transmission Date: 20120928
  Serious: No
  Sender: FDA-Public Use
  Company Number: US-ASTRAZENECA-2012SE10328

PATIENT
  Age: 51 Year
  Sex: Female
  Weight: 68 kg

DRUGS (4)
  1. SEROQUEL XR [Suspect]
     Route: 048
  2. SEROQUEL XR [Suspect]
     Route: 048
     Dates: start: 20111017
  3. LEVOTHYROXINE SODIUM [Concomitant]
  4. SEROQUEL XR [Suspect]
     Indication: ANXIETY
     Route: 048

REACTIONS (3)
  - ADVERSE EVENT [None]
  - DEPRESSIVE SYMPTOM [None]
  - OFF LABEL USE [None]
